FAERS Safety Report 12202426 (Version 2)
Quarter: 2016Q2

REPORT INFORMATION
  Report Type: Spontaneous
  Country: US (occurrence: US)
  Receive Date: 20160322
  Receipt Date: 20160527
  Transmission Date: 20160815
  Serious: Yes (Other)
  Sender: FDA-Public Use
  Company Number: US-009507513-1603USA008170

PATIENT
  Age: 71 Year
  Sex: Female
  Weight: 82.99 kg

DRUGS (2)
  1. KEYTRUDA [Suspect]
     Active Substance: PEMBROLIZUMAB
     Indication: METASTASES TO LUNG
  2. KEYTRUDA [Suspect]
     Active Substance: PEMBROLIZUMAB
     Indication: TONSIL CANCER
     Dosage: 174 MG, EVERY 3 WEEKS
     Route: 042
     Dates: start: 20151202, end: 20160427

REACTIONS (16)
  - Blood lactate dehydrogenase increased [Unknown]
  - Malignant neoplasm progression [Not Recovered/Not Resolved]
  - Hypothyroidism [Unknown]
  - Hypomagnesaemia [Recovering/Resolving]
  - Malignant neoplasm progression [Not Recovered/Not Resolved]
  - Arthralgia [Unknown]
  - Dysphagia [Unknown]
  - Product use issue [Unknown]
  - Dry mouth [Unknown]
  - Fatigue [Unknown]
  - Cough [Not Recovered/Not Resolved]
  - Pain in extremity [Unknown]
  - Rash [Unknown]
  - Onychomadesis [Unknown]
  - Bone pain [Unknown]
  - Malaise [Unknown]

NARRATIVE: CASE EVENT DATE: 20151202
